FAERS Safety Report 15393548 (Version 2)
Quarter: 2019Q3

REPORT INFORMATION
  Report Type: Report from Study
  Country: DE (occurrence: DE)
  Receive Date: 20180917
  Receipt Date: 20190726
  Transmission Date: 20191004
  Serious: Yes (Hospitalization)
  Sender: FDA-Public Use
  Company Number: DE-MYLANLABS-2018M1067447

PATIENT
  Age: 57 Year
  Sex: Male

DRUGS (10)
  1. METHOTREXATE. [Suspect]
     Active Substance: METHOTREXATE
     Indication: RHEUMATOID ARTHRITIS
     Dosage: 35 MG, UNK
     Route: 065
  2. FORMATRIS [Concomitant]
     Active Substance: FORMOTEROL FUMARATE
  3. LANTAREL [Concomitant]
     Active Substance: METHOTREXATE SODIUM
  4. RITUXIMAB. [Suspect]
     Active Substance: RITUXIMAB
     Indication: RHEUMATOID ARTHRITIS
     Dosage: 1000 MG, UNK
     Route: 065
     Dates: start: 20180125
  5. NOVOPULMON [Concomitant]
     Active Substance: BUDESONIDE
  6. SALBUTAMOL [Concomitant]
     Active Substance: ALBUTEROL
  7. LODOTRA [Concomitant]
     Active Substance: PREDNISONE
  8. IBUFLAM                            /00109201/ [Concomitant]
     Active Substance: IBUPROFEN
  9. FOLINIC ACID [Concomitant]
     Active Substance: LEUCOVORIN
  10. OMEPRAZOL                          /00661201/ [Concomitant]
     Active Substance: OMEPRAZOLE

REACTIONS (1)
  - Complicated appendicitis [Recovered/Resolved]

NARRATIVE: CASE EVENT DATE: 20180411
